FAERS Safety Report 7993665-9 (Version None)
Quarter: 2011Q4

REPORT INFORMATION
  Report Type: 
  Country: None (occurrence: None)
  Receive Date: 20111219
  Receipt Date: 20111208
  Transmission Date: 20120403
  Serious: Yes (Other)
  Sender: FDA-Public Use
  Company Number: US-ASTRAZENECA-2011SE74397

PATIENT
  Age: 71 Year
  Sex: Male
  Weight: 79.4 kg

DRUGS (4)
  1. CRESTOR [Suspect]
     Indication: BLOOD CHOLESTEROL INCREASED
     Route: 048
     Dates: start: 20100101
  2. DOXETIN [Concomitant]
     Indication: SLEEP DISORDER
  3. ZOLOST [Concomitant]
     Indication: DEPRESSION
  4. ATENOLOL [Concomitant]
     Indication: HYPERTENSION

REACTIONS (3)
  - TENDON RUPTURE [None]
  - PAIN IN EXTREMITY [None]
  - MUSCLE SWELLING [None]
